FAERS Safety Report 22071628 (Version 2)
Quarter: 2023Q2

REPORT INFORMATION
  Report Type: Spontaneous
  Country: US (occurrence: US)
  Receive Date: 20230307
  Receipt Date: 20230420
  Transmission Date: 20230722
  Serious: Yes (Other)
  Sender: FDA-Public Use
  Company Number: US-PFIZER INC-PV202300040623

PATIENT
  Age: 70 Year
  Sex: Male
  Weight: 74.389 kg

DRUGS (1)
  1. METOPROLOL TARTRATE [Suspect]
     Active Substance: METOPROLOL TARTRATE
     Dosage: UNK

REACTIONS (4)
  - Pancreatitis [Unknown]
  - Ocular discomfort [Unknown]
  - Drug hypersensitivity [Unknown]
  - Eye disorder [Unknown]

NARRATIVE: CASE EVENT DATE: 20110624
